FAERS Safety Report 5215372-8 (Version None)
Quarter: 2006Q4

REPORT INFORMATION
  Report Type: 
  Country: None (occurrence: None)
  Receive Date: 20061122
  Receipt Date: 20060407
  Transmission Date: 20070319
  Serious: Yes (Hospitalization, Other)
  Sender: FDA-Public Use
  Company Number: 2006048689

PATIENT
  Age: 40 Year
  Sex: Female

DRUGS (5)
  1. LIPITOR [Suspect]
     Indication: BLOOD CHOLESTEROL INCREASED
     Dosage: (DAILY INTERVAL; EVERY DAY), ORAL
     Route: 048
  2. VITORIN (EZETIMIBE, SIMVASTATIN) [Suspect]
     Indication: BLOOD CHOLESTEROL INCREASED
     Dates: start: 20051201
  3. FLECAINIDE ACETATE [Suspect]
     Indication: EXTRASYSTOLES
  4. TEMAZEPAM [Concomitant]
  5. ASPIRIN [Concomitant]

REACTIONS (5)
  - BLOOD CHOLESTEROL INCREASED [None]
  - CHEST PAIN [None]
  - EXTRASYSTOLES [None]
  - SLEEP APNOEA SYNDROME [None]
  - WEIGHT INCREASED [None]
